FAERS Safety Report 6538120-8 (Version None)
Quarter: 2010Q1

REPORT INFORMATION
  Report Type: 
  Country: None (occurrence: None)
  Receive Date: 20100114
  Receipt Date: 20100104
  Transmission Date: 20100710
  Serious: Yes (Death)
  Sender: FDA-Public Use
  Company Number: US-PFIZER INC-2010001227

PATIENT
  Age: 47 Year
  Sex: Female

DRUGS (11)
  1. VERAPAMIL HCL [Suspect]
     Route: 048
  2. ESCITALOPRAM [Suspect]
     Route: 048
  3. SUCRALFATE [Concomitant]
  4. ATORVASTATIN [Concomitant]
  5. ACETAMINOPHEN AND HYDROCODONE BITARTRATE [Concomitant]
  6. OMEPRAZOLE [Concomitant]
  7. POLYETHYLENE GLYCOL [Concomitant]
  8. MONTELUKAST [Concomitant]
  9. ZOLPIDEM [Concomitant]
  10. SYNTHROID [Concomitant]
  11. VITAMIN B-12 [Concomitant]

REACTIONS (2)
  - CARDIAC ARREST [None]
  - COMPLETED SUICIDE [None]
